FAERS Safety Report 21548358 (Version 1)
Quarter: 2022Q4

REPORT INFORMATION
  Report Type: Spontaneous
  Country: US (occurrence: US)
  Receive Date: 20221103
  Receipt Date: 20221103
  Transmission Date: 20230112
  Serious: No
  Sender: FDA-Public Use
  Company Number: US-PFIZER INC-PV202200076337

PATIENT
  Age: 20 Year
  Sex: Male

DRUGS (1)
  1. XELJANZ [Suspect]
     Active Substance: TOFACITINIB CITRATE
     Dosage: 20 MG, 2X/DAY

REACTIONS (4)
  - Condition aggravated [Unknown]
  - Impaired work ability [Unknown]
  - Drug effect less than expected [Unknown]
  - Intentional product misuse [Unknown]
